FAERS Safety Report 10180630 (Version 1)
Quarter: 2014Q2

REPORT INFORMATION
  Report Type: Spontaneous
  Country: US (occurrence: US)
  Receive Date: 20140519
  Receipt Date: 20140519
  Transmission Date: 20141212
  Serious: No
  Sender: FDA-Public Use
  Company Number: US-AMGEN INC.-USASP2014018954

PATIENT
  Age: 60 Year
  Sex: Female

DRUGS (16)
  1. PROLIA [Suspect]
     Indication: OSTEOPOROSIS POSTMENOPAUSAL
     Dosage: UNK
     Dates: start: 201308
  2. DALIRESP [Concomitant]
     Dosage: 500 MUG, QD
  3. DILTIAZEM [Concomitant]
     Dosage: 240 MG, QD
     Route: 065
  4. OMEPRAZOLE [Concomitant]
     Dosage: 20 MG, QD
     Route: 065
  5. METHIMAZOLE [Concomitant]
     Dosage: 5 MG, UNK
  6. VENLAFAXINE [Concomitant]
     Dosage: 75 MG, UNK
  7. ESTRADIOL [Concomitant]
     Dosage: 1 MG, QD
  8. ALPRAZOLAM 1 A PHARMA [Concomitant]
     Dosage: 0.25 MG, AS NECESSARY
     Route: 065
  9. PRAMIPEXOLE                        /01356402/ [Concomitant]
     Dosage: 0.25 MG, TID
     Route: 065
  10. CRESTOR [Concomitant]
     Dosage: 0.5 MG, QD
     Route: 065
  11. SYMBICORT [Concomitant]
     Dosage: 2 PUFFS BID
  12. COMBIVENT [Concomitant]
     Dosage: 1 PUFF
     Route: 065
  13. IPRATROPIUM                        /00391402/ [Concomitant]
     Dosage: NEBS, 1 TO 4 TIMES A DAY.
  14. ALBUTEROL                          /00139501/ [Concomitant]
     Dosage: NEBS, 1 TO 4 TIMES A DAY.
     Route: 065
  15. VITAMIN D3 [Concomitant]
     Dosage: 5000 IU, QMO
     Route: 065
  16. VITAMIN B12                        /00056201/ [Concomitant]
     Dosage: UNK UNK, QMO
     Route: 065

REACTIONS (4)
  - Musculoskeletal chest pain [Unknown]
  - Back pain [Unknown]
  - Nasopharyngitis [Unknown]
  - Musculoskeletal pain [Unknown]
